FAERS Safety Report 5197962-4 (Version None)
Quarter: 2007Q1

REPORT INFORMATION
  Report Type: 
  Country: None (occurrence: None)
  Receive Date: 20070104
  Receipt Date: 20061227
  Transmission Date: 20070707
  Serious: Yes (Other)
  Sender: FDA-Public Use
  Company Number: PHEH2006US15557

PATIENT
  Age: 61 Year
  Sex: Female

DRUGS (3)
  1. VITAMIN D [Concomitant]
     Dosage: 400 IU, QD
  2. VITAMIN D [Concomitant]
     Dosage: 1600 IU, QD
     Dates: start: 20061001
  3. MIACALCIN [Suspect]
     Indication: OSTEOPOROSIS
     Dosage: 200 IU, QD
     Dates: start: 20020101

REACTIONS (4)
  - BLOOD PARATHYROID HORMONE DECREASED [None]
  - BLOOD PARATHYROID HORMONE INCREASED [None]
  - DRUG INEFFECTIVE [None]
  - VITAMIN D DECREASED [None]
